FAERS Safety Report 6199197-5 (Version None)
Quarter: 2009Q2

REPORT INFORMATION
  Report Type: 
  Country: None (occurrence: None)
  Receive Date: 20090522
  Receipt Date: 20090520
  Transmission Date: 20091009
  Serious: Yes (Death)
  Sender: FDA-Public Use
  Company Number: GB-ROCHE-630744

PATIENT
  Age: 71 Year
  Sex: Female

DRUGS (2)
  1. TORADOL [Suspect]
     Indication: CANCER PAIN
     Route: 065
     Dates: start: 20090424
  2. ANTIEMETIC NOS [Concomitant]

REACTIONS (3)
  - DRY MOUTH [None]
  - DYSPHAGIA [None]
  - NEOPLASM MALIGNANT [None]
